FAERS Safety Report 8977576 (Version 2)
Quarter: 2012Q4

REPORT INFORMATION
  Report Type: 
  Country: US (occurrence: US)
  Receive Date: 20121220
  Receipt Date: 20121231
  Transmission Date: 20130627
  Serious: Yes (Hospitalization)
  Sender: FDA-Public Use
  Company Number: US-ELI_LILLY_AND_COMPANY-US201210009447

PATIENT
  Sex: Female

DRUGS (2)
  1. FORTEO [Suspect]
     Indication: OSTEOPOROSIS
     Dosage: 20 ug, qd
     Dates: start: 201206
  2. FORTEO [Suspect]
     Dosage: 20 ug, qd
     Dates: start: 20120730

REACTIONS (3)
  - Back pain [Unknown]
  - Intervertebral disc disorder [Unknown]
  - Post procedural haematoma [Unknown]
